FAERS Safety Report 8986897 (Version 1)
Quarter: 2012Q4

REPORT INFORMATION
  Report Type: 
  Country: IT (occurrence: IT)
  Receive Date: 20121226
  Receipt Date: 20121226
  Transmission Date: 20130627
  Serious: Yes (Other)
  Sender: FDA-Public Use
  Company Number: IT-MYLANLABS-2012S1025762

PATIENT
  Age: 13 Year
  Sex: Female

DRUGS (1)
  1. RISPERIDONE [Suspect]
     Indication: BEHAVIOURAL AND PSYCHIATRIC SYMPTOMS OF DEMENTIA
     Route: 048
     Dates: start: 20120901, end: 20120921

REACTIONS (2)
  - Drug ineffective for unapproved indication [Unknown]
  - Product substitution issue [Unknown]
